FAERS Safety Report 21557444 (Version 2)
Quarter: 2022Q4

REPORT INFORMATION
  Report Type: Spontaneous
  Country: US (occurrence: US)
  Receive Date: 20221105
  Receipt Date: 20221116
  Transmission Date: 20230113
  Serious: Yes (Hospitalization, Other)
  Sender: FDA-Public Use
  Company Number: US-MLMSERVICE-20221019-3863812-1

PATIENT
  Age: 60 Year
  Sex: Male

DRUGS (1)
  1. METHOTREXATE [Suspect]
     Active Substance: METHOTREXATE
     Indication: Retinopathy proliferative
     Dosage: STRENGTH: 4000 UG/ML, INTRAVITREAL USE

REACTIONS (3)
  - Corneal disorder [Recovered/Resolved]
  - Corneal toxicity [Unknown]
  - Off label use [Unknown]
